FAERS Safety Report 9663689 (Version 2)
Quarter: 2013Q4

REPORT INFORMATION
  Report Type: Spontaneous
  Country: US (occurrence: US)
  Receive Date: 20131101
  Receipt Date: 20131114
  Transmission Date: 20140711
  Serious: Yes (Hospitalization, Other)
  Sender: FDA-Public Use
  Company Number: PHEH2013US022770

PATIENT
  Sex: Male

DRUGS (5)
  1. DIOVAN [Suspect]
     Dosage: 160 MG, QD
  2. FUROSEMIDE [Concomitant]
     Dosage: 40 MG, QD
  3. AMLODIPINE BESYLATE [Concomitant]
     Dosage: 5 MG, QD
  4. BABY ASPIRIN [Concomitant]
     Dosage: 1 DF, (81 MG)
  5. POTASSIUM [Concomitant]
     Dosage: 10 MG, BID

REACTIONS (8)
  - Hypoaesthesia [Unknown]
  - Dysstasia [Unknown]
  - Exostosis [Unknown]
  - Herpes zoster [Unknown]
  - Nerve compression [Unknown]
  - Nerve injury [Not Recovered/Not Resolved]
  - Feeling abnormal [Unknown]
  - Loss of consciousness [Unknown]
